FAERS Safety Report 8541131-4 (Version None)
Quarter: 2012Q3

REPORT INFORMATION
  Report Type: 
  Country: None (occurrence: None)
  Receive Date: 20120726
  Receipt Date: 20110818
  Transmission Date: 20120928
  Serious: No
  Sender: FDA-Public Use
  Company Number: US-ASTRAZENECA-2011SE49878

PATIENT
  Age: 33 Year
  Sex: Female

DRUGS (1)
  1. SEROQUEL [Suspect]
     Route: 048

REACTIONS (7)
  - CHEST PAIN [None]
  - GAIT DISTURBANCE [None]
  - DRUG DOSE OMISSION [None]
  - ADVERSE DRUG REACTION [None]
  - HEART RATE INCREASED [None]
  - INSOMNIA [None]
  - DYSPNOEA [None]
